FAERS Safety Report 4559431-1 (Version None)
Quarter: 2005Q1

REPORT INFORMATION
  Report Type: 
  Country: None (occurrence: None)
  Receive Date: 20050119
  Receipt Date: 20050107
  Transmission Date: 20050727
  Serious: Yes (Hospitalization)
  Sender: FDA-Public Use
  Company Number: 2005AL000085

PATIENT
  Age: 61 Year
  Sex: Female

DRUGS (9)
  1. SERAX [Suspect]
     Dosage: 0.5 MG; QD; PO
     Route: 048
     Dates: end: 20041114
  2. BACTRIM [Suspect]
     Dosage: PO
     Route: 048
     Dates: start: 20041101, end: 20041108
  3. OXYBUTYNIN [Suspect]
     Dosage: QD; PO
     Route: 048
     Dates: end: 20041114
  4. FERO-GRAD LP [Suspect]
     Dosage: PO
     Route: 048
     Dates: end: 20041114
  5. DOMPERIDONE [Suspect]
     Dosage: PO
     Route: 048
     Dates: end: 20041114
  6. DAONIL [Concomitant]
  7. METFORMIN HCL [Concomitant]
  8. LEVOTHYROXINE SODIUM [Concomitant]
  9. SEROPAM [Concomitant]

REACTIONS (1)
  - HYPERKALAEMIA [None]
